FAERS Safety Report 5267308-1 (Version None)
Quarter: 2007Q1

REPORT INFORMATION
  Report Type: 
  Country: None (occurrence: None)
  Receive Date: 20070316
  Receipt Date: 20070308
  Transmission Date: 20070707
  Serious: Yes (Other)
  Sender: FDA-Public Use
  Company Number: FR-GLAXOSMITHKLINE-B0461729A

PATIENT
  Age: 63 Year
  Sex: Male

DRUGS (2)
  1. HYCAMTIN [Suspect]
     Route: 042
     Dates: start: 20061204
  2. ZOPHREN [Concomitant]
     Indication: PROPHYLAXIS OF NAUSEA AND VOMITING
     Route: 065

REACTIONS (1)
  - VERTIGO [None]
